FAERS Safety Report 13172985 (Version 1)
Quarter: 2017Q1

REPORT INFORMATION
  Report Type: Spontaneous
  Country: US (occurrence: US)
  Receive Date: 20170201
  Receipt Date: 20170201
  Transmission Date: 20170428
  Serious: No
  Sender: FDA-Public Use
  Company Number: US-ABBVIE-16K-163-1569009-00

PATIENT
  Sex: Female

DRUGS (1)
  1. HUMIRA [Suspect]
     Active Substance: ADALIMUMAB
     Indication: HIDRADENITIS
     Dosage: ONCE EVERY WEEK
     Route: 058
     Dates: start: 201511

REACTIONS (4)
  - Incorrect dose administered [Unknown]
  - Injury associated with device [Recovered/Resolved]
  - Wrong technique in product usage process [Unknown]
  - Injection site pain [Recovered/Resolved]
